FAERS Safety Report 5006875-X (Version None)
Quarter: 2006Q2

REPORT INFORMATION
  Report Type: 
  Country: None (occurrence: None)
  Receive Date: 20060516
  Receipt Date: 20060502
  Transmission Date: 20061013
  Serious: Yes (Death)
  Sender: FDA-Public Use
  Company Number: HQWYE332611FEB03

PATIENT
  Age: 44 Year
  Sex: Male

DRUGS (5)
  1. EFFEXOR XR [Suspect]
     Indication: DEPRESSION
     Dosage: SEE IMAGE
     Route: 048
     Dates: end: 20030101
  2. EFFEXOR XR [Suspect]
     Indication: DEPRESSION
     Dosage: SEE IMAGE
     Route: 048
     Dates: start: 20030101
  3. ABILIFY [Suspect]
     Dosage: 15 MG 1X PER 1 DAY,
  4. ATIVAN [Suspect]
     Dosage: 1 MG 2X PER 1 DAY,
  5. SERZONE [Suspect]
     Dosage: 75 MG 1X PER 1 DAY,

REACTIONS (9)
  - ARTERIOSCLEROSIS CORONARY ARTERY [None]
  - CARDIO-RESPIRATORY ARREST [None]
  - CYANOSIS [None]
  - DRUG DOSE OMISSION [None]
  - FALL [None]
  - IMPRISONMENT [None]
  - LOSS OF CONSCIOUSNESS [None]
  - MYOCARDIAL INFARCTION [None]
  - THERAPY REGIMEN CHANGED [None]
